FAERS Safety Report 9741404 (Version 3)
Quarter: 2013Q4

REPORT INFORMATION
  Report Type: Spontaneous
  Country: JP (occurrence: JP)
  Receive Date: 20131209
  Receipt Date: 20131231
  Transmission Date: 20140711
  Serious: Yes (Hospitalization)
  Sender: FDA-Public Use
  Company Number: PHHY2013JP133641

PATIENT
  Age: 13 Year
  Sex: Female
  Weight: 55 kg

DRUGS (3)
  1. TEGRETOL [Suspect]
     Indication: EPILEPSY
     Dates: start: 20120208
  2. TEGRETOL [Suspect]
     Dosage: 100 MG, DAILY
     Route: 048
     Dates: end: 20130708
  3. SELENICA-R [Suspect]

REACTIONS (15)
  - Abnormal behaviour [Unknown]
  - Toxicity to various agents [Unknown]
  - Musculoskeletal stiffness [Unknown]
  - Dysarthria [Unknown]
  - Restlessness [Unknown]
  - Headache [Unknown]
  - Dizziness [Unknown]
  - Speech disorder [Unknown]
  - Aggression [Unknown]
  - Altered state of consciousness [Recovered/Resolved]
  - Overdose [Recovered/Resolved]
  - Blood glucose increased [Unknown]
  - White blood cell count increased [Unknown]
  - Blood lactate dehydrogenase increased [Unknown]
  - Drug ineffective [Unknown]
